FAERS Safety Report 20113768 (Version 2)
Quarter: 2022Q3

REPORT INFORMATION
  Report Type: Spontaneous
  Country: GB (occurrence: GB)
  Receive Date: 20211125
  Receipt Date: 20220826
  Transmission Date: 20221026
  Serious: Yes (Other)
  Sender: FDA-Public Use
  Company Number: None

PATIENT
  Age: 35 Year
  Sex: Female

DRUGS (2)
  1. MONTELUKAST [Suspect]
     Active Substance: MONTELUKAST SODIUM
     Indication: Ill-defined disorder
     Dosage: 10MG/DAY
     Route: 048
     Dates: start: 20160115, end: 20160122
  2. PULMICORT TURBUHALER [Concomitant]
     Active Substance: BUDESONIDE
     Indication: Ill-defined disorder
     Dosage: UNKNOWN
     Route: 065

REACTIONS (3)
  - Anxiety [Recovered/Resolved with Sequelae]
  - Depression [Recovered/Resolved with Sequelae]
  - Nightmare [Unknown]

NARRATIVE: CASE EVENT DATE: 20180207
